FAERS Safety Report 7017548-6 (Version None)
Quarter: 2010Q3

REPORT INFORMATION
  Report Type: 
  Country: None (occurrence: None)
  Receive Date: 20100928
  Receipt Date: 20100607
  Transmission Date: 20110219
  Serious: No
  Sender: FDA-Public Use
  Company Number: US-MYLANLABS-2010S1010152

PATIENT
  Sex: Female

DRUGS (2)
  1. CARBIDOPA AND LEVODOPA TABLETS USP [Suspect]
     Indication: TREMOR
     Route: 048
  2. CARBIDOPA AND LEVODOPA TABLETS USP [Suspect]
     Route: 048

REACTIONS (5)
  - DRUG INEFFECTIVE [None]
  - HYPERKINESIA [None]
  - NAUSEA [None]
  - TREMOR [None]
  - VOMITING [None]
